FAERS Safety Report 7374351-5 (Version None)
Quarter: 2011Q1

REPORT INFORMATION
  Report Type: 
  Country: None (occurrence: None)
  Receive Date: 20110317
  Receipt Date: 20110301
  Transmission Date: 20110831
  Serious: Yes (Death, Hospitalization, Other)
  Sender: FDA-Public Use
  Company Number: 2010AC000453

PATIENT
  Age: 73 Year
  Sex: Male

DRUGS (21)
  1. DIGOXIN [Suspect]
     Indication: CORONARY ARTERY DISEASE
     Dosage: 0.125 MG; QD; PO
     Route: 048
     Dates: start: 20061001, end: 20070501
  2. ASPIRIN [Concomitant]
  3. NITROGLYCERIN [Concomitant]
  4. STARLIX [Concomitant]
  5. DIGOXIN [Suspect]
     Indication: CORONARY ARTERY DISEASE
     Dosage: 0.125 MG; QD; PO
     Route: 048
     Dates: start: 20040101, end: 20050201
  6. NOVOLOG [Concomitant]
  7. VITAMIN K TAB [Concomitant]
  8. PERIACTIN [Concomitant]
  9. LASIX [Concomitant]
  10. OXYGEN [Concomitant]
  11. HYDROCODONE BITARTRATE AND ACETAMINOPHEN [Concomitant]
  12. HYDREA [Concomitant]
  13. NEXIUM [Concomitant]
  14. WARFARIN SODIUM [Concomitant]
  15. LIPITOR [Concomitant]
  16. LISINOPRIL [Concomitant]
  17. IMDUR [Concomitant]
  18. LYRICA [Concomitant]
  19. METOPROLOL TARTRATE [Concomitant]
  20. POTASSIUM CHLORIDE [Concomitant]
  21. BETAPACE [Concomitant]

REACTIONS (41)
  - FAMILY STRESS [None]
  - EJECTION FRACTION DECREASED [None]
  - ANAEMIA [None]
  - ELECTROCARDIOGRAM ST SEGMENT ABNORMAL [None]
  - UNRESPONSIVE TO STIMULI [None]
  - HYPOPHAGIA [None]
  - CARDIAC FAILURE CONGESTIVE [None]
  - PAIN [None]
  - ATRIAL FIBRILLATION [None]
  - SICK SINUS SYNDROME [None]
  - SOMNOLENCE [None]
  - INTERNATIONAL NORMALISED RATIO DECREASED [None]
  - DIZZINESS [None]
  - LEFT VENTRICULAR DYSFUNCTION [None]
  - HAEMATOCHEZIA [None]
  - SOCIAL PROBLEM [None]
  - EPISTAXIS [None]
  - CEREBRAL MICROANGIOPATHY [None]
  - METABOLIC ENCEPHALOPATHY [None]
  - RESPIRATORY TRACT INFECTION [None]
  - TOXICITY TO VARIOUS AGENTS [None]
  - INJURY [None]
  - ANXIETY [None]
  - ECONOMIC PROBLEM [None]
  - CORONARY ARTERY STENOSIS [None]
  - FEELING HOT [None]
  - PLEURAL EFFUSION [None]
  - HALLUCINATION [None]
  - DEHYDRATION [None]
  - ELECTROENCEPHALOGRAM ABNORMAL [None]
  - CARDIAC ARREST [None]
  - HEPATOMEGALY [None]
  - TOXIC ENCEPHALOPATHY [None]
  - INTERNATIONAL NORMALISED RATIO INCREASED [None]
  - BRADYCARDIA [None]
  - ATRIAL FLUTTER [None]
  - OEDEMA PERIPHERAL [None]
  - GASTRITIS [None]
  - CONFUSIONAL STATE [None]
  - HYPERGLYCAEMIA [None]
  - SUDDEN CARDIAC DEATH [None]
